FAERS Safety Report 20393383 (Version 3)
Quarter: 2022Q2

REPORT INFORMATION
  Report Type: Spontaneous
  Country: US (occurrence: US)
  Receive Date: 20220128
  Receipt Date: 20220403
  Transmission Date: 20220720
  Serious: No
  Sender: FDA-Public Use
  Company Number: US-BAUSCH-BL-2022-001648

PATIENT
  Age: 76 Year
  Sex: Female
  Weight: 52.210 kg

DRUGS (4)
  1. TRETINOIN [Suspect]
     Active Substance: TRETINOIN
     Indication: Solar lentigo
     Route: 061
     Dates: start: 202112
  2. TRETINOIN [Suspect]
     Active Substance: TRETINOIN
     Indication: Product use in unapproved indication
  3. TRETINOIN [Suspect]
     Active Substance: TRETINOIN
     Indication: Solar lentigo
     Dosage: DAILY (STARTED APPROXIMATELY A YEAR AGO)
     Route: 065
  4. TRETINOIN [Suspect]
     Active Substance: TRETINOIN
     Indication: Product use in unapproved indication

REACTIONS (3)
  - Application site irritation [Recovered/Resolved]
  - Drug ineffective for unapproved indication [Unknown]
  - Product use in unapproved indication [Unknown]
